FAERS Safety Report 23484923 (Version 1)
Quarter: 2024Q1

REPORT INFORMATION
  Report Type: Report from Study
  Country: US (occurrence: US)
  Receive Date: 20240206
  Receipt Date: 20240206
  Transmission Date: 20240410
  Serious: No
  Sender: FDA-Public Use
  Company Number: US-ORG100014127-2023000138

PATIENT
  Age: 28 Year
  Sex: Female

DRUGS (5)
  1. LYSODREN [Suspect]
     Active Substance: MITOTANE
     Indication: Adrenal gland cancer
     Dosage: 09 TABLETS DAILY
     Route: 048
     Dates: start: 20221007
  2. Amlodipine Tab 10mg, 2.5mg, 5mg [Concomitant]
     Indication: Product used for unknown indication
  3. Dexamethasone 4mg/ml SDV; [Concomitant]
     Indication: Product used for unknown indication
  4. Oxycodone Tab 5 mg [Concomitant]
     Indication: Product used for unknown indication
  5. PREDNISONE [Concomitant]
     Active Substance: PREDNISONE
     Indication: Product used for unknown indication

REACTIONS (2)
  - Abdominal discomfort [Not Recovered/Not Resolved]
  - Diarrhoea [Not Recovered/Not Resolved]

NARRATIVE: CASE EVENT DATE: 20230115
